FAERS Safety Report 6613863-6 (Version None)
Quarter: 2010Q1

REPORT INFORMATION
  Report Type: 
  Country: None (occurrence: None)
  Receive Date: 20100225
  Receipt Date: 20100210
  Transmission Date: 20100710
  Serious: Yes (Hospitalization)
  Sender: FDA-Public Use
  Company Number: 2010000032

PATIENT
  Age: 78 Year
  Sex: Male
  Weight: 39.2 kg

DRUGS (10)
  1. ERLOTINIB (ERLOTINIB) (TABLET) (ERLOTINIB) [Suspect]
     Indication: NON-SMALL CELL LUNG CANCER
     Dosage: (150 MG,QD), ORAL
     Route: 048
     Dates: start: 20090528, end: 20090621
  2. MUCODYNE (CARBOCISTEINE) [Concomitant]
  3. ASVERIN (TIPEPIDINE HIBENZATE) [Concomitant]
  4. FAMOTIDINE [Concomitant]
  5. ALUMINUM HYDROXIDE AND MAGNESIUM TRISILICATE [Concomitant]
  6. LOXOPROFEN ( LOXOPROFEN) [Concomitant]
  7. MUCOSTA (REBAMIPIDE) [Concomitant]
  8. FENTANYL-100 [Concomitant]
  9. VERAPAMIL HYDROCHLORIDE [Concomitant]
  10. MEDICON ( DEXTROMETHORPHAN HYDROBROMIDE) [Concomitant]

REACTIONS (7)
  - CONVULSION [None]
  - LYMPHANGIOSIS CARCINOMATOSA [None]
  - MALIGNANT NEOPLASM PROGRESSION [None]
  - NON-SMALL CELL LUNG CANCER [None]
  - PNEUMONIA [None]
  - PYREXIA [None]
  - RESPIRATORY FAILURE [None]
